FAERS Safety Report 19643967 (Version 1)
Quarter: 2021Q3

REPORT INFORMATION
  Report Type: Report from Study
  Country: BR (occurrence: BR)
  Receive Date: 20210731
  Receipt Date: 20210731
  Transmission Date: 20211014
  Serious: Yes (Death, Hospitalization, Other)
  Sender: FDA-Public Use
  Company Number: NVSC2021BR172322

PATIENT
  Age: 32 Year
  Sex: Female

DRUGS (2)
  1. TRAMETINIB [Suspect]
     Active Substance: TRAMETINIB
     Indication: BRAF GENE MUTATION
     Dosage: UNK
     Route: 065
     Dates: start: 201807
  2. DABRAFENIB [Suspect]
     Active Substance: DABRAFENIB
     Indication: BRAF GENE MUTATION
     Dosage: UNK
     Route: 065
     Dates: start: 201807

REACTIONS (7)
  - Arthritis [Unknown]
  - Skin lesion [Unknown]
  - Metastases to meninges [Fatal]
  - Depressed level of consciousness [Fatal]
  - Seizure [Fatal]
  - Atrial septal defect [Unknown]
  - Central nervous system lesion [Fatal]

NARRATIVE: CASE EVENT DATE: 20181220
